FAERS Safety Report 5200005-7 (Version None)
Quarter: 2007Q1

REPORT INFORMATION
  Report Type: 
  Country: None (occurrence: None)
  Receive Date: 20070103
  Receipt Date: 20061221
  Transmission Date: 20070707
  Serious: Yes (Hospitalization)
  Sender: FDA-Public Use
  Company Number: 2006SP004462

PATIENT
  Age: 12 Week
  Sex: Male
  Weight: 5.4 kg

DRUGS (2)
  1. XOPENEX [Suspect]
     Indication: TRACHEAL DISORDER
     Dosage: 0.63 MG/3ML; PRN; INHALATION
     Route: 055
     Dates: start: 20061101, end: 20061201
  2. PULMICORT [Suspect]
     Indication: TRACHEAL DISORDER
     Dates: start: 20061101

REACTIONS (3)
  - CONSTIPATION [None]
  - FEMUR FRACTURE [None]
  - WHITE BLOOD CELL COUNT INCREASED [None]
